FAERS Safety Report 10424771 (Version 1)
Quarter: 2014Q3

REPORT INFORMATION
  Report Type: Spontaneous
  Country: US (occurrence: US)
  Receive Date: 20140902
  Receipt Date: 20140902
  Transmission Date: 20150326
  Serious: Yes (Death)
  Sender: FDA-Public Use
  Company Number: US-FRI-1000070312

PATIENT
  Age: 32 Year
  Sex: Female
  Weight: 68 kg

DRUGS (1)
  1. SAPHRIS [Suspect]
     Active Substance: ASENAPINE MALEATE
     Indication: BIPOLAR DISORDER

REACTIONS (4)
  - Completed suicide [Fatal]
  - Asphyxia [Fatal]
  - Feeling abnormal [Fatal]
  - Emotional disorder [Fatal]

NARRATIVE: CASE EVENT DATE: 20130921
